FAERS Safety Report 4804496-2 (Version None)
Quarter: 2005Q4

REPORT INFORMATION
  Report Type: 
  Country: None (occurrence: None)
  Receive Date: 20051017
  Receipt Date: 20051003
  Transmission Date: 20060501
  Serious: Yes (Hospitalization)
  Sender: FDA-Public Use
  Company Number: CIP04001241

PATIENT
  Age: 74 Year
  Sex: Female

DRUGS (1)
  1. OPTINATE(RISEDRONATE SODIUM) TABLET, 30MG [Suspect]
     Indication: OSTEOPOROSIS
     Dosage: 30 MG, DAILY, ORAL
     Route: 048
     Dates: start: 20000526, end: 20040525

REACTIONS (21)
  - ACCIDENTAL OVERDOSE [None]
  - ADENOMATOUS POLYPOSIS COLI [None]
  - COLON ADENOMA [None]
  - COLON NEOPLASM [None]
  - COLONIC POLYP [None]
  - DERMATITIS [None]
  - DYSPLASIA [None]
  - DYSSTASIA [None]
  - HEPATIC ENZYME INCREASED [None]
  - INCORRECT DOSE ADMINISTERED [None]
  - MUSCLE DISORDER [None]
  - MUSCLE NECROSIS [None]
  - MUSCULAR WEAKNESS [None]
  - MYALGIA [None]
  - MYOGLOBIN BLOOD INCREASED [None]
  - MYOSITIS [None]
  - POLYMYOSITIS [None]
  - PULMONARY EMBOLISM [None]
  - RHABDOMYOLYSIS [None]
  - THROMBOPHLEBITIS SUPERFICIAL [None]
  - TRANSAMINASES INCREASED [None]
